FAERS Safety Report 9951971 (Version 1)
Quarter: 2014Q1

REPORT INFORMATION
  Report Type: Spontaneous
  Country: IE (occurrence: IE)
  Receive Date: 20140304
  Receipt Date: 20140304
  Transmission Date: 20141002
  Serious: Yes (Other)
  Sender: FDA-Public Use
  Company Number: IE-PFIZER INC-2014057787

PATIENT
  Sex: 0

DRUGS (1)
  1. ZYVOX [Suspect]

REACTIONS (1)
  - Pathogen resistance [Unknown]
